FAERS Safety Report 11802334 (Version 1)
Quarter: 2015Q4

REPORT INFORMATION
  Report Type: Spontaneous
  Country: US (occurrence: None)
  Receive Date: 20151203
  Receipt Date: 20151203
  Transmission Date: 20160305
  Serious: Yes (Life-Threatening, Hospitalization, Disabling)
  Sender: FDA-Public Use
  Company Number: None

PATIENT
  Age: 31 Year
  Sex: Female
  Weight: 106.6 kg

DRUGS (2)
  1. SPRINTEC [Suspect]
     Active Substance: ETHINYL ESTRADIOL\NORGESTIMATE
     Indication: CONTRACEPTION
  2. IRON PILLS [Concomitant]
     Active Substance: IRON

REACTIONS (4)
  - Deep vein thrombosis [None]
  - Scar [None]
  - Fear of disease [None]
  - Pulmonary embolism [None]

NARRATIVE: CASE EVENT DATE: 20130101
